APPROVED DRUG PRODUCT: METHADONE HYDROCHLORIDE
Active Ingredient: METHADONE HYDROCHLORIDE
Strength: 5MG
Dosage Form/Route: TABLET;ORAL
Application: A211228 | Product #001 | TE Code: AA
Applicant: ASCENT PHARMACEUTICALS INC
Approved: Jan 3, 2019 | RLD: No | RS: No | Type: RX